FAERS Safety Report 10069657 (Version 1)
Quarter: 2014Q2

REPORT INFORMATION
  Report Type: Spontaneous
  Country: IT (occurrence: IT)
  Receive Date: 20140410
  Receipt Date: 20140410
  Transmission Date: 20141212
  Serious: Yes (Life-Threatening)
  Sender: FDA-Public Use
  Company Number: IT-ROCHE-1380099

PATIENT
  Age: 67 Year
  Sex: Female

DRUGS (1)
  1. PERJETA [Suspect]
     Indication: BREAST CANCER METASTATIC
     Route: 042
     Dates: start: 20140403, end: 20140403

REACTIONS (3)
  - Flushing [Recovered/Resolved]
  - Skin reaction [Recovered/Resolved]
  - Respiratory fatigue [Recovered/Resolved]
